FAERS Safety Report 8306956-9 (Version None)
Quarter: 2012Q2

REPORT INFORMATION
  Report Type: 
  Country: None (occurrence: None)
  Receive Date: 20120424
  Receipt Date: 20120417
  Transmission Date: 20120825
  Serious: Yes (Hospitalization)
  Sender: FDA-Public Use
  Company Number: NL-UCBSA-055482

PATIENT
  Age: 24 Hour
  Sex: Female

DRUGS (6)
  1. FERROFUMARAAT [Concomitant]
     Indication: ANAEMIA
     Dosage: 200 MG
     Route: 064
  2. VITAMIN K TAB [Concomitant]
     Route: 030
     Dates: start: 20120301
  3. KEPPRA [Suspect]
     Indication: EPILEPSY
     Dosage: 500-250-250
     Route: 064
     Dates: start: 20110101, end: 20120330
  4. FOLIUMZUUR [Concomitant]
     Route: 064
  5. LAMOTRGINE [Suspect]
     Indication: EPILEPSY
     Route: 064
     Dates: start: 20110101, end: 20120330
  6. FYTOMENADION [Concomitant]
     Dosage: 10 MG/ML: PARENT ROUTE: INTRAVENOUS/ORAL
     Route: 064

REACTIONS (2)
  - HYPOVENTILATION [None]
  - FOETAL EXPOSURE DURING PREGNANCY [None]
